FAERS Safety Report 9661637 (Version 2)
Quarter: 2013Q4

REPORT INFORMATION
  Report Type: Spontaneous
  Country: US (occurrence: US)
  Receive Date: 20131031
  Receipt Date: 20131031
  Transmission Date: 20140711
  Serious: No
  Sender: FDA-Public Use
  Company Number: US-PURDUE-USA-2010-0055517

PATIENT
  Age: 41 Year
  Sex: Male
  Weight: 88.44 kg

DRUGS (2)
  1. OXYCONTIN (NDA 22-272) [Suspect]
     Indication: BACK PAIN
     Dosage: 20 MG, UNK
     Route: 048
     Dates: start: 201103, end: 2011
  2. OXYCODONE HCL IR CAPSULES [Concomitant]
     Indication: BREAKTHROUGH PAIN
     Dosage: 5 MG, UNK

REACTIONS (4)
  - Pain [Unknown]
  - Drug effect decreased [Unknown]
  - Therapeutic response delayed [Unknown]
  - Inadequate analgesia [Unknown]
